FAERS Safety Report 18599131 (Version 1)
Quarter: 2020Q4

REPORT INFORMATION
  Report Type: Spontaneous
  Country: US (occurrence: US)
  Receive Date: 20201110
  Receipt Date: 20201110
  Transmission Date: 20210114
  Serious: Yes (Other)
  Sender: FDA-Public Use
  Company Number: None

PATIENT
  Age: 4 Decade
  Sex: Male

DRUGS (4)
  1. HYDROXYCHLOROQUINE [Suspect]
     Active Substance: HYDROXYCHLOROQUINE
     Indication: COVID-19
     Dosage: ?          OTHER DOSE:400MG, THEN 200MG;?
     Dates: start: 2020
  2. DEXAMETHASONE. [Suspect]
     Active Substance: DEXAMETHASONE
  3. OSELTAMIVIR [Suspect]
     Active Substance: OSELTAMIVIR
  4. AZITHROMYCIN ANHYDROUS. [Suspect]
     Active Substance: AZITHROMYCIN ANHYDROUS

REACTIONS (8)
  - Blindness [None]
  - Progressive multifocal leukoencephalopathy [None]
  - Visual acuity reduced [None]
  - Hypertension [None]
  - Apathy [None]
  - Product use in unapproved indication [None]
  - Confusional state [None]
  - Agitation [None]
